FAERS Safety Report 7232721-X (Version None)
Quarter: 2011Q1

REPORT INFORMATION
  Report Type: 
  Country: None (occurrence: None)
  Receive Date: 20110110
  Receipt Date: 20101223
  Transmission Date: 20110831
  Serious: Yes (Hospitalization)
  Sender: FDA-Public Use
  Company Number: 2010SP066032

PATIENT
  Age: 64 Year
  Sex: Female

DRUGS (8)
  1. DILANTIN [Concomitant]
  2. TEMODAL [Suspect]
     Indication: GLIOBLASTOMA MULTIFORME
     Dosage: 200 MG; 200 MG
     Dates: start: 20101217
  3. TEMODAL [Suspect]
     Indication: GLIOBLASTOMA MULTIFORME
     Dosage: 200 MG; 200 MG
     Dates: start: 20101220
  4. CLARATYNE (LORATADINE / 00917510/) [Suspect]
  5. SOMAC [Concomitant]
  6. DEXAMETHASONE [Concomitant]
  7. PANADOL [Concomitant]
  8. ZOFRAN [Concomitant]

REACTIONS (2)
  - CONVULSION [None]
  - EYE SWELLING [None]
